FAERS Safety Report 10249213 (Version 2)
Quarter: 2014Q2

REPORT INFORMATION
  Report Type: Spontaneous
  Country: US (occurrence: US)
  Receive Date: 20140620
  Receipt Date: 20140620
  Transmission Date: 20141212
  Serious: Yes (Hospitalization)
  Sender: FDA-Public Use
  Company Number: US-SA-2014SA072258

PATIENT
  Age: 51 Year
  Sex: Male
  Weight: 73.3 kg

DRUGS (1)
  1. CEREZYME [Suspect]
     Indication: GAUCHER^S DISEASE
     Route: 042

REACTIONS (2)
  - Hypertension [Not Recovered/Not Resolved]
  - Joint dislocation [Not Recovered/Not Resolved]
